FAERS Safety Report 18329976 (Version 1)
Quarter: 2020Q3

REPORT INFORMATION
  Report Type: Report from Study
  Country: US (occurrence: US)
  Receive Date: 20200930
  Receipt Date: 20200930
  Transmission Date: 20201103
  Serious: Yes (Other)
  Sender: FDA-Public Use
  Company Number: US-PFIZER INC-2020376881

PATIENT
  Age: 15 Year
  Sex: Female

DRUGS (5)
  1. IFOSFAMIDE. [Interacting]
     Active Substance: IFOSFAMIDE
     Indication: OSTEOSARCOMA
     Dosage: 1600 MG/M2, DAILY (OVER 15 MINUTES FOR FIVE DAYS, ADMINISTERED AT 21? TO 28?DAY INTERVALS)
     Route: 042
  2. MESNA. [Interacting]
     Active Substance: MESNA
     Indication: OSTEOSARCOMA
     Dosage: 400 MG/M2, DAILY (AT FOUR AND SIX HOURS AFTER IFOSFAMIDE)
  3. FUROSEMIDE. [Suspect]
     Active Substance: FUROSEMIDE
     Dosage: UNK
  4. DEXTROSE. [Concomitant]
     Active Substance: DEXTROSE
     Dosage: 1000 ML/M^2, IN 1/3 NORMAL SALINE
  5. DIPHENHYDRAMINE HCL [Interacting]
     Active Substance: DIPHENHYDRAMINE HYDROCHLORIDE
     Dosage: UNK

REACTIONS (2)
  - Drug interaction [Recovering/Resolving]
  - Neurotoxicity [Recovering/Resolving]
